FAERS Safety Report 4438930-7 (Version None)
Quarter: 2004Q3

REPORT INFORMATION
  Report Type: 
  Country: None (occurrence: None)
  Receive Date: 20040830
  Receipt Date: 20040820
  Transmission Date: 20050211
  Serious: Yes (Hospitalization)
  Sender: FDA-Public Use
  Company Number: A044-002-005150

PATIENT
  Age: 73 Year
  Sex: Female
  Weight: 75 kg

DRUGS (3)
  1. DONEPEZIL HCL [Suspect]
     Indication: DEMENTIA ALZHEIMER'S TYPE
     Dosage: 5 MG, 1 IN 1 D, ORAL
     Route: 048
     Dates: start: 20040101, end: 20040817
  2. CITALOPRAM HYDROBROMIDE [Concomitant]
  3. SEROQUEL [Concomitant]

REACTIONS (3)
  - COAGULOPATHY [None]
  - ECCHYMOSIS [None]
  - HAEMORRHAGE [None]
